FAERS Safety Report 6182043-3 (Version None)
Quarter: 2009Q2

REPORT INFORMATION
  Report Type: 
  Country: None (occurrence: None)
  Receive Date: 20090507
  Receipt Date: 20090429
  Transmission Date: 20091009
  Serious: Yes (Death, Hospitalization)
  Sender: FDA-Public Use
  Company Number: AR-ABBOTT-09P-007-0557716-00

PATIENT
  Sex: Male
  Weight: 65 kg

DRUGS (2)
  1. SEVOFLURANE [Suspect]
     Indication: COLONOSCOPY
     Route: 055
     Dates: start: 20090106, end: 20090106
  2. SEVOFLURANE [Suspect]
     Indication: ANAESTHESIA

REACTIONS (2)
  - ATRIAL FIBRILLATION [None]
  - DILATATION VENTRICULAR [None]
